FAERS Safety Report 8367055-3 (Version None)
Quarter: 2012Q1

REPORT INFORMATION
  Report Type: 
  Country: None (occurrence: None)
  Receive Date: 20120323
  Receipt Date: 20110406
  Transmission Date: 20120608
  Serious: Yes (Hospitalization)
  Sender: FDA-Public Use
  Company Number: 163-21880-11040790

PATIENT
  Age: 77 Year
  Sex: Male
  Weight: 72.5755 kg

DRUGS (12)
  1. LIPITOR [Concomitant]
  2. REVLIMID [Suspect]
     Indication: MULTIPLE MYELOMA
     Dosage: 5 MG, DAILY X 28 DAYS, PO
     Route: 048
     Dates: start: 20100218, end: 20110328
  3. MULTIVITAMIN [Concomitant]
  4. METFORMIN HCL [Concomitant]
  5. NEURONTIN [Concomitant]
  6. ALLOPURINOL [Concomitant]
  7. PLAVIX [Concomitant]
  8. ASPIRIN [Concomitant]
  9. ATENOLOL [Concomitant]
  10. CINNAMON (CINNAMOMUM VERUM) [Concomitant]
  11. SYNTHROID (LEVOTHYROXIN SODIUM) [Concomitant]
  12. CAPTOPRIL [Concomitant]

REACTIONS (2)
  - GAIT DISTURBANCE [None]
  - PAIN IN EXTREMITY [None]
